FAERS Safety Report 16266469 (Version 1)
Quarter: 2019Q2

REPORT INFORMATION
  Report Type: Spontaneous
  Country: AU (occurrence: AU)
  Receive Date: 20190502
  Receipt Date: 20190502
  Transmission Date: 20190711
  Serious: Yes (Death, Life-Threatening, Hospitalization)
  Sender: FDA-Public Use
  Company Number: AU-CELGENEUS-AUS-20190301273

PATIENT
  Age: 50 Year

DRUGS (1)
  1. ISTODAX [Suspect]
     Active Substance: ROMIDEPSIN
     Indication: PERIPHERAL T-CELL LYMPHOMA UNSPECIFIED REFRACTORY
     Route: 041
     Dates: start: 20180920, end: 20181018

REACTIONS (1)
  - Peripheral T-cell lymphoma unspecified refractory [Fatal]

NARRATIVE: CASE EVENT DATE: 20181019
